FAERS Safety Report 9185018 (Version 1)
Quarter: 2013Q1

REPORT INFORMATION
  Report Type: Report from Study
  Country: US (occurrence: US)
  Receive Date: 20130325
  Receipt Date: 20130325
  Transmission Date: 20140127
  Serious: No
  Sender: FDA-Public Use
  Company Number: US-VERTEX PHARMACEUTICALS INC.-2013-003964

PATIENT
  Sex: Female
  Weight: 105 kg

DRUGS (1)
  1. VX-950 (TELAPREVIR) [Suspect]
     Indication: HEPATITIS C
     Dosage: 750 MG, TID
     Route: 048
     Dates: start: 20130122

REACTIONS (3)
  - Decreased appetite [Unknown]
  - Fatigue [Unknown]
  - Haemoglobin decreased [Unknown]
